FAERS Safety Report 24874738 (Version 2)
Quarter: 2025Q3

REPORT INFORMATION
  Report Type: Spontaneous
  Country: EU (occurrence: EU)
  Receive Date: 20250122
  Receipt Date: 20250803
  Transmission Date: 20251020
  Serious: Yes (Other)
  Sender: ALEXION PHARMACEUTICALS
  Company Number: EU-SA-2024SA362163

PATIENT
  Age: 6 Month
  Sex: Male
  Weight: 7.35 kg

DRUGS (1)
  1. NIRSEVIMAB [Suspect]
     Active Substance: NIRSEVIMAB
     Dates: start: 20241121, end: 20241121

REACTIONS (3)
  - Respiratory syncytial virus bronchiolitis [Recovered/Resolved]
  - Wheezing [Unknown]
  - Rales [Unknown]

NARRATIVE: CASE EVENT DATE: 20241128
